FAERS Safety Report 22167325 (Version 3)
Quarter: 2023Q2

REPORT INFORMATION
  Report Type: Spontaneous
  Country: US (occurrence: US)
  Receive Date: 20230403
  Receipt Date: 20230512
  Transmission Date: 20230722
  Serious: Yes (Hospitalization, Other)
  Sender: FDA-Public Use
  Company Number: US-PFIZER INC-202300140249

PATIENT
  Age: 7 Year

DRUGS (2)
  1. XELJANZ [Suspect]
     Active Substance: TOFACITINIB CITRATE
     Indication: Juvenile idiopathic arthritis
     Dosage: 5 MG, 2X/DAY
  2. EMAPALUMAB [Suspect]
     Active Substance: EMAPALUMAB
     Indication: Juvenile idiopathic arthritis
     Dosage: UNK

REACTIONS (6)
  - Gastroenteritis viral [Unknown]
  - Pneumothorax [Unknown]
  - Condition aggravated [Unknown]
  - Lymphadenitis [Unknown]
  - Off label use [Unknown]
  - Product use issue [Unknown]
